FAERS Safety Report 20343171 (Version 1)
Quarter: 2022Q1

REPORT INFORMATION
  Report Type: Spontaneous
  Country: US (occurrence: US)
  Receive Date: 20220117
  Receipt Date: 20220117
  Transmission Date: 20220423
  Serious: No
  Sender: FDA-Public Use
  Company Number: US-SANOFI-00927517

PATIENT
  Age: 75 Year
  Sex: Female

DRUGS (1)
  1. APIDRA [Suspect]
     Active Substance: INSULIN GLULISINE
     Indication: Type 2 diabetes mellitus
     Dosage: 10 U; FREQUENCY: WITH EACH MEAL.

REACTIONS (4)
  - Cough [Unknown]
  - Sneezing [Unknown]
  - Visual impairment [Unknown]
  - Device leakage [Unknown]
